FAERS Safety Report 6091376-0 (Version None)
Quarter: 2009Q1

REPORT INFORMATION
  Report Type: 
  Country: None (occurrence: None)
  Receive Date: 20090225
  Receipt Date: 20081031
  Transmission Date: 20090719
  Serious: No
  Sender: FDA-Public Use
  Company Number: A0754438A

PATIENT
  Age: 40 Year
  Sex: Male

DRUGS (3)
  1. VERAMYST [Suspect]
     Route: 045
  2. PATANOL [Concomitant]
  3. ASTELIN [Concomitant]

REACTIONS (2)
  - HYPOAESTHESIA FACIAL [None]
  - SWELLING FACE [None]
